FAERS Safety Report 9752354 (Version 1)
Quarter: 2013Q4

REPORT INFORMATION
  Report Type: Spontaneous
  Country: DE (occurrence: None)
  Receive Date: 20131211
  Receipt Date: 20131211
  Transmission Date: 20140711
  Serious: Yes (Hospitalization)
  Sender: FDA-Public Use
  Company Number: AUR-APL-2013-10166

PATIENT
  Age: 81 Year
  Sex: Female

DRUGS (10)
  1. MIRTAZAPINE (MIRTAZAPINE) [Suspect]
     Route: 048
     Dates: start: 201301
  2. ALLOPURINOL [Suspect]
     Route: 048
     Dates: start: 20130312, end: 20130319
  3. DULOXETINE [Suspect]
     Route: 048
     Dates: start: 201101, end: 20130308
  4. PANTOPRAZOLE (PANTOPRAZOLE) [Concomitant]
  5. DOMPERIDONE (DOMPERIDONE) [Concomitant]
  6. I-THYROXIN (LEVOTHYROXINE SODIUM) [Concomitant]
  7. ASS (ACETYLSALICYLIC ACID) [Concomitant]
  8. TORASEMIDE (TORASEMIDE) [Concomitant]
  9. RAMIPRIL (RAMIPRIL) [Concomitant]
  10. SIMVASTATIN (SIMVASTATIN) [Concomitant]

REACTIONS (1)
  - Renal impairment [None]
